FAERS Safety Report 6671471-5 (Version None)
Quarter: 2010Q2

REPORT INFORMATION
  Report Type: 
  Country: None (occurrence: None)
  Receive Date: 20100407
  Receipt Date: 20100331
  Transmission Date: 20101027
  Serious: Yes (Other)
  Sender: FDA-Public Use
  Company Number: JP-MERCK-1004USA00142

PATIENT

DRUGS (2)
  1. COZAAR [Suspect]
     Route: 048
  2. LASIX [Concomitant]
     Route: 065

REACTIONS (1)
  - PANCYTOPENIA [None]
